FAERS Safety Report 6274697-8 (Version None)
Quarter: 2009Q3

REPORT INFORMATION
  Report Type: 
  Country: None (occurrence: None)
  Receive Date: 20090721
  Receipt Date: 20070517
  Transmission Date: 20100115
  Serious: Yes (Other)
  Sender: FDA-Public Use
  Company Number: US-ASTRAZENECA-2006UW25021

PATIENT
  Age: 18485 Day
  Sex: Male
  Weight: 74.8 kg

DRUGS (18)
  1. SEROQUEL [Suspect]
     Indication: DEPRESSION
     Dosage: STRENGTH-  25MG, 100MG.  DOSE-  25-300 MG DAILY
     Route: 048
     Dates: start: 19990824
  2. HALDOL [Concomitant]
     Indication: AGITATION
     Route: 017
     Dates: start: 20011127
  3. RISPERDAL [Concomitant]
  4. NEURONTIN [Concomitant]
     Indication: DIABETIC NEUROPATHY
     Dosage: 200-900 MG DAILY
     Route: 048
     Dates: start: 20030308
  5. LOPRESSOR [Concomitant]
     Route: 048
     Dates: start: 20030308
  6. CAPTOPRIL [Concomitant]
     Dosage: 6.25-75 MG
     Route: 048
     Dates: start: 20030308
  7. ASPIRIN [Concomitant]
     Dosage: 81-325 MG EVERY DAY
     Route: 048
     Dates: start: 20030308
  8. MAG OX -400 [Concomitant]
     Route: 048
     Dates: start: 20011127
  9. LANOXIN [Concomitant]
     Route: 048
     Dates: start: 20011127
  10. CATAPRES [Concomitant]
     Route: 048
     Dates: start: 20011127
  11. ATIVAN [Concomitant]
     Indication: AGITATION
     Dosage: 0.5-8 MG
     Dates: start: 20011127, end: 20030803
  12. ATIVAN [Concomitant]
     Indication: ALCOHOL WITHDRAWAL SYNDROME
     Dosage: 0.5-8 MG
     Dates: start: 20011127, end: 20030803
  13. DEPAKOTE [Concomitant]
     Dosage: STRENGTH 250-1500 MG
     Route: 048
     Dates: start: 19980312
  14. AMITRIPTYLINE [Concomitant]
     Route: 048
     Dates: start: 19991230
  15. THIAMINE HCL [Concomitant]
     Route: 048
     Dates: start: 19991230
  16. FOLIC ACID [Concomitant]
     Route: 048
  17. COREG [Concomitant]
     Dosage: 3.125-6.250 MG TWICE A DAY
     Route: 048
     Dates: start: 20020202
  18. VALIUM [Concomitant]
     Dosage: 20 MG AS A START THEN TAPERED TO 4 MG EVERY 6 HOURS
     Route: 048
     Dates: start: 20030803

REACTIONS (3)
  - DIABETES MELLITUS [None]
  - DIABETIC NEUROPATHY [None]
  - HYPOGLYCAEMIA [None]
